FAERS Safety Report 8584139-5 (Version None)
Quarter: 2012Q3

REPORT INFORMATION
  Report Type: 
  Country: None (occurrence: None)
  Receive Date: 20120810
  Receipt Date: 20120807
  Transmission Date: 20120928
  Serious: No
  Sender: FDA-Public Use
  Company Number: US-009507513-1208USA003305

PATIENT

DRUGS (3)
  1. CELEXA [Concomitant]
  2. VITAMINS (UNSPECIFIED) [Concomitant]
  3. NUVARING [Suspect]
     Indication: CONTRACEPTION
     Dosage: UNK, 1 RING FOR 3 WEEKS
     Route: 067
     Dates: start: 20070101

REACTIONS (1)
  - METRORRHAGIA [None]
